FAERS Safety Report 7361869-4 (Version None)
Quarter: 2011Q1

REPORT INFORMATION
  Report Type: 
  Country: None (occurrence: None)
  Receive Date: 20110315
  Receipt Date: 20110315
  Transmission Date: 20110831
  Serious: Yes (Other)
  Sender: FDA-Public Use
  Company Number: None

PATIENT
  Sex: Male
  Weight: 79.5 kg

DRUGS (3)
  1. OTC MULTI-VITAMIN [Concomitant]
  2. ASPIRIN [Concomitant]
  3. CRESTOR [Suspect]
     Indication: BLOOD CHOLESTEROL INCREASED
     Dosage: 5 MG DAILY ORAL
     Route: 048
     Dates: start: 20061101

REACTIONS (6)
  - INSOMNIA [None]
  - MYALGIA [None]
  - ARTHRALGIA [None]
  - NEUROPATHY PERIPHERAL [None]
  - MUSCULAR WEAKNESS [None]
  - CONDITION AGGRAVATED [None]
